FAERS Safety Report 4508933-2 (Version None)
Quarter: 2004Q4

REPORT INFORMATION
  Report Type: 
  Country: None (occurrence: None)
  Receive Date: 20041122
  Receipt Date: 20041122
  Transmission Date: 20050328
  Serious: Yes (Hospitalization)
  Sender: FDA-Public Use
  Company Number: None

PATIENT
  Sex: Male
  Weight: 80.2 kg

DRUGS (2)
  1. OXALIPLATIN [Suspect]
     Indication: COLON CANCER METASTATIC
     Dosage: 100 MG/M2    Q 2 WEEKS
     Dates: start: 20041020, end: 20041104
  2. CAPECITABINE 2800 MG X 6 DOSES [Suspect]
     Indication: COLON CANCER METASTATIC
     Dosage: 2800 MG  X 6 Q 2 WEEKS
     Dates: start: 20040920, end: 20041106

REACTIONS (2)
  - NAUSEA [None]
  - VOMITING [None]
